FAERS Safety Report 8552161-0 (Version None)
Quarter: 2012Q3

REPORT INFORMATION
  Report Type: 
  Country: None (occurrence: None)
  Receive Date: 20120731
  Receipt Date: 20120720
  Transmission Date: 20120928
  Serious: No
  Sender: FDA-Public Use
  Company Number: US-BIOGENIDEC-2012BI022160

PATIENT

DRUGS (2)
  1. AVONEX [Suspect]
     Route: 030
  2. AVONEX [Suspect]
     Indication: MULTIPLE SCLEROSIS
     Route: 030
     Dates: start: 20110321, end: 20110321

REACTIONS (4)
  - LIP SWELLING [None]
  - MEMORY IMPAIRMENT [None]
  - HYPERSENSITIVITY [None]
  - URTICARIA [None]
